FAERS Safety Report 9145971 (Version 1)
Quarter: 2013Q1

REPORT INFORMATION
  Report Type: Spontaneous
  Country: US (occurrence: None)
  Receive Date: 20130206
  Receipt Date: 20130206
  Transmission Date: 20140127
  Serious: Yes (Death)
  Sender: FDA-Public Use
  Company Number: IMP_06469_2013

PATIENT
  Age: 64 Year
  Sex: Male

DRUGS (5)
  1. ALPRAZOLAM [Suspect]
  2. FENTANYL [Suspect]
  3. MORPHINE [Suspect]
  4. DIAZEPAM [Suspect]
  5. CITALOPRAM [Suspect]

REACTIONS (1)
  - Drug abuse [None]
